FAERS Safety Report 4869077-3 (Version None)
Quarter: 2005Q4

REPORT INFORMATION
  Report Type: 
  Country: None (occurrence: None)
  Receive Date: 20051221
  Receipt Date: 20051212
  Transmission Date: 20060501
  Serious: Yes (Hospitalization)
  Sender: FDA-Public Use
  Company Number: 2005-02778

PATIENT
  Age: 75 Year
  Sex: Male

DRUGS (3)
  1. THERACYS [Suspect]
     Indication: BLADDER CANCER
     Dosage: I.VES.
     Route: 043
     Dates: start: 20051212
  2. INTERFERON [Concomitant]
  3. TYLENOL [Concomitant]

REACTIONS (2)
  - PYREXIA [None]
  - TREMOR [None]
